FAERS Safety Report 19788482 (Version 1)
Quarter: 2021Q3

REPORT INFORMATION
  Report Type: Spontaneous
  Country: HR (occurrence: HR)
  Receive Date: 20210903
  Receipt Date: 20210903
  Transmission Date: 20211014
  Serious: Yes (Other)
  Sender: FDA-Public Use
  Company Number: HR-009507513-2107HRV007126

PATIENT
  Age: 58 Year
  Sex: Male

DRUGS (2)
  1. SITAGLIPTIN PHOSPHATE [Suspect]
     Active Substance: SITAGLIPTIN PHOSPHATE
     Dosage: UNK
     Route: 048
  2. METFORMIN [Concomitant]
     Active Substance: METFORMIN HYDROCHLORIDE

REACTIONS (4)
  - COVID-19 [Recovering/Resolving]
  - Diabetes mellitus [Unknown]
  - Hypotension [Unknown]
  - Glycosylated haemoglobin abnormal [Recovering/Resolving]
